FAERS Safety Report 11771968 (Version 3)
Quarter: 2017Q1

REPORT INFORMATION
  Report Type: Report from Study
  Country: US (occurrence: US)
  Receive Date: 20151124
  Receipt Date: 20170329
  Transmission Date: 20170428
  Serious: Yes (Other)
  Sender: FDA-Public Use
  Company Number: US-AMGEN-USASL2015123858

PATIENT
  Age: 53 Year
  Sex: Female

DRUGS (3)
  1. ENBREL [Suspect]
     Active Substance: ETANERCEPT
     Dosage: UNK
     Route: 065
     Dates: start: 2012
  2. ENBREL [Suspect]
     Active Substance: ETANERCEPT
     Dosage: 25 MG, 2 TIMES/WK
     Route: 065
  3. ENBREL [Suspect]
     Active Substance: ETANERCEPT
     Indication: POLYCHONDRITIS
     Dosage: 25 MG, 2 TIMES/WK
     Route: 065
     Dates: start: 2010

REACTIONS (11)
  - Surgery [Unknown]
  - Injection site swelling [Recovered/Resolved]
  - Gastrointestinal disorder [Unknown]
  - Staphylococcal infection [Unknown]
  - Injection site bruising [Not Recovered/Not Resolved]
  - Increased tendency to bruise [Unknown]
  - Injection site erythema [Recovered/Resolved]
  - Reaction to drug excipients [Unknown]
  - Off label use [Unknown]
  - Cellulitis [Unknown]
  - Polychondritis [Unknown]

NARRATIVE: CASE EVENT DATE: 2010
